FAERS Safety Report 4690862-5 (Version None)
Quarter: 2005Q2

REPORT INFORMATION
  Report Type: 
  Country: None (occurrence: None)
  Receive Date: 20050614
  Receipt Date: 20050601
  Transmission Date: 20051028
  Serious: Yes (Hospitalization)
  Sender: FDA-Public Use
  Company Number: 2005081487

PATIENT
  Age: 59 Year
  Sex: Male

DRUGS (4)
  1. ROLAIDS [Suspect]
     Dosage: 15-25 TABLETS QD, ORAL
     Route: 048
  2. ALPRAZOLAM [Concomitant]
  3. APOREX (DEXTROPROPOXYPHENE  HYDROCHLORIDE, PARACETAMOL) [Concomitant]
  4. ASPIRIN [Concomitant]

REACTIONS (28)
  - ANOREXIA [None]
  - ASTERIXIS [None]
  - ASTHENIA [None]
  - BLOOD CALCIUM INCREASED [None]
  - BLOOD CHLORIDE DECREASED [None]
  - BLOOD CREATININE INCREASED [None]
  - BLOOD MAGNESIUM INCREASED [None]
  - BLOOD PH INCREASED [None]
  - BLOOD PHOSPHORUS INCREASED [None]
  - BLOOD POTASSIUM DECREASED [None]
  - BLOOD PRESSURE INCREASED [None]
  - BLOOD UREA INCREASED [None]
  - CARBON DIOXIDE INCREASED [None]
  - CONFABULATION [None]
  - CONFUSIONAL STATE [None]
  - DIFFICULTY IN WALKING [None]
  - DYSARTHRIA [None]
  - DYSPEPSIA [None]
  - GASTRIC ULCER [None]
  - HAEMATEMESIS [None]
  - HYPOREFLEXIA [None]
  - NAUSEA [None]
  - OESOPHAGEAL ULCER [None]
  - PCO2 INCREASED [None]
  - PO2 DECREASED [None]
  - RESPIRATORY RATE INCREASED [None]
  - SKIN TURGOR DECREASED [None]
  - VOMITING [None]
